FAERS Safety Report 22265853 (Version 2)
Quarter: 2023Q2

REPORT INFORMATION
  Report Type: Spontaneous
  Country: FR (occurrence: FR)
  Receive Date: 20230428
  Receipt Date: 20230602
  Transmission Date: 20230722
  Serious: Yes (Death, Congenital Anomaly)
  Sender: FDA-Public Use
  Company Number: None

PATIENT

DRUGS (3)
  1. LAMOTRIGINE [Suspect]
     Active Substance: LAMOTRIGINE
     Indication: Epilepsy
     Dosage: UNIT DOSE : 100 MG, FREQUENCY TIME : 1 DAY, DURATION : 56 DAYS
     Route: 064
     Dates: start: 20221231, end: 20230225
  2. LAMOTRIGINE [Suspect]
     Active Substance: LAMOTRIGINE
     Route: 064
     Dates: start: 20230226
  3. CLOTRIMAZOLE [Suspect]
     Active Substance: CLOTRIMAZOLE
     Indication: Vulvovaginal pruritus
     Route: 064
     Dates: start: 202301, end: 202301

REACTIONS (2)
  - Congenital musculoskeletal disorder of limbs [Fatal]
  - Limb reduction defect [Fatal]

NARRATIVE: CASE EVENT DATE: 20230309
